FAERS Safety Report 4924615-7 (Version None)
Quarter: 2006Q1

REPORT INFORMATION
  Report Type: 
  Country: None (occurrence: None)
  Receive Date: 20060221
  Receipt Date: 20060208
  Transmission Date: 20060701
  Serious: Yes (Hospitalization)
  Sender: FDA-Public Use
  Company Number: B0411485A

PATIENT
  Age: 69 Year
  Sex: Male

DRUGS (7)
  1. LITHIUM CARBONATE [Suspect]
     Dosage: 2 TABLET/TWICE PER DAY / ORAL
     Route: 048
  2. ENALAPRIL + HCLTHIAZIDE (ENALAPRIL _  HCLTHIAZIDE) [Suspect]
  3. PRAMIPEXOLE DIHYDROCHLORIDE [Concomitant]
  4. CO-CARELDOPA [Concomitant]
  5. ATENOLOL [Concomitant]
  6. MAPROTILINE [Concomitant]
  7. AMOX.TRIHYD+PO.CLAVULAN. [Concomitant]

REACTIONS (21)
  - BLOOD LACTATE DEHYDROGENASE INCREASED [None]
  - BRADYPHRENIA [None]
  - C-REACTIVE PROTEIN INCREASED [None]
  - CLUMSINESS [None]
  - COGWHEEL RIGIDITY [None]
  - DISORIENTATION [None]
  - ELECTROCARDIOGRAM QT PROLONGED [None]
  - GAIT DISTURBANCE [None]
  - HAEMATURIA [None]
  - HYPERREFLEXIA [None]
  - HYPOTENSION [None]
  - MALAISE [None]
  - MOVEMENT DISORDER [None]
  - MUSCLE RIGIDITY [None]
  - MYOCLONUS [None]
  - PYREXIA [None]
  - SPEECH DISORDER [None]
  - STUPOR [None]
  - THERAPEUTIC AGENT TOXICITY [None]
  - TREMOR [None]
  - URINARY TRACT INFECTION [None]
